FAERS Safety Report 6935985-2 (Version None)
Quarter: 2010Q3

REPORT INFORMATION
  Report Type: 
  Country: None (occurrence: None)
  Receive Date: 20100816
  Receipt Date: 20090625
  Transmission Date: 20110219
  Serious: Yes (Other)
  Sender: FDA-Public Use
  Company Number: US-WYE-H09903909

PATIENT
  Age: 84 Year
  Sex: Male

DRUGS (3)
  1. TYGACIL [Suspect]
     Indication: CELLULITIS
     Dosage: 100 MG THEN 50 MG Q 12 H, INTRAVENOUS
     Route: 042
     Dates: start: 20090615, end: 20090623
  2. DIGOXIN [Concomitant]
  3. PROTONIX [Concomitant]

REACTIONS (1)
  - THROMBOCYTOPENIA [None]
